FAERS Safety Report 4420853-0 (Version None)
Quarter: 2004Q3

REPORT INFORMATION
  Report Type: 
  Country: None (occurrence: None)
  Receive Date: 20040809
  Receipt Date: 20040730
  Transmission Date: 20050211
  Serious: Yes (Other)
  Sender: FDA-Public Use
  Company Number: 200411762DE

PATIENT
  Age: 76 Year
  Sex: Female
  Weight: 66 kg

DRUGS (8)
  1. LANTUS [Suspect]
     Indication: DIABETES MELLITUS
     Route: 058
     Dates: start: 20030902, end: 20040501
  2. GLYBURIDE [Concomitant]
     Indication: DIABETES MELLITUS
     Dosage: DOSE: 2-0-1
     Route: 048
  3. TENSOBON [Concomitant]
     Indication: HYPERTENSION
     Route: 048
  4. ANTIHYPERTENSIVES [Concomitant]
     Indication: HYPERTENSION
     Route: 048
  5. DOCITON [Concomitant]
     Indication: HYPERTENSION
  6. PARKINSAN [Concomitant]
     Indication: PARKINSON'S DISEASE
  7. PRESOMEN COMPOSITUM [Concomitant]
  8. ROHYPNOL [Concomitant]
     Indication: SLEEP DISORDER

REACTIONS (2)
  - MUSCLE ATROPHY [None]
  - WEIGHT DECREASED [None]
